FAERS Safety Report 23207163 (Version 1)
Quarter: 2023Q4

REPORT INFORMATION
  Report Type: Spontaneous
  Country: US (occurrence: US)
  Receive Date: 20231120
  Receipt Date: 20231120
  Transmission Date: 20240110
  Serious: Yes (Other)
  Sender: FDA-Public Use
  Company Number: US-BEH-2023165481

PATIENT
  Age: 12 Year
  Sex: Male

DRUGS (4)
  1. IDELVION [Suspect]
     Active Substance: COAGULATION FACTOR IX RECOMBINANT HUMAN
     Indication: Factor IX deficiency
     Dosage: 2000 INTERNATIONAL UNIT, QW
     Route: 042
     Dates: start: 202309
  2. IDELVION [Suspect]
     Active Substance: COAGULATION FACTOR IX RECOMBINANT HUMAN
     Indication: Factor IX deficiency
     Dosage: 2000 INTERNATIONAL UNIT, QW
     Route: 042
     Dates: start: 202309
  3. IDELVION [Suspect]
     Active Substance: COAGULATION FACTOR IX RECOMBINANT HUMAN
     Dosage: 500 INTERNATIONAL UNIT, QW
     Route: 042
     Dates: start: 202309
  4. IDELVION [Suspect]
     Active Substance: COAGULATION FACTOR IX RECOMBINANT HUMAN
     Dosage: 500 INTERNATIONAL UNIT, QW
     Route: 042
     Dates: start: 202309

REACTIONS (1)
  - Haemarthrosis [Unknown]
